FAERS Safety Report 6706855-X (Version None)
Quarter: 2010Q2

REPORT INFORMATION
  Report Type: 
  Country: None (occurrence: None)
  Receive Date: 20100503
  Receipt Date: 20100409
  Transmission Date: 20101027
  Serious: Yes (Death, Life-Threatening, Other)
  Sender: FDA-Public Use
  Company Number: PHHY2009JP49926

PATIENT
  Sex: Male

DRUGS (17)
  1. ICL670A ICL+DISTAB [Suspect]
     Indication: IRON OVERLOAD
     Dosage: 1000 MG/DAY
     Route: 048
     Dates: start: 20090707, end: 20090821
  2. ICL670A ICL+DISTAB [Suspect]
     Indication: MYELODYSPLASTIC SYNDROME
  3. ICL670A ICL+DISTAB [Suspect]
     Indication: REFRACTORY CYTOPENIA WITH MULTILINEAGE DYSPLASIA
  4. TAKEPRON [Concomitant]
     Indication: MYELODYSPLASTIC SYNDROME
     Dosage: 15 MG, UNK
     Route: 048
     Dates: start: 20080321, end: 20090825
  5. ALFACALCIDOL [Concomitant]
     Indication: MYELODYSPLASTIC SYNDROME
     Dosage: 1 MG, UNK
     Route: 048
     Dates: start: 20080321, end: 20090825
  6. GLAKAY [Concomitant]
     Indication: MYELODYSPLASTIC SYNDROME
     Dosage: 45 MG, UNK
     Route: 048
     Dates: start: 20080321, end: 20090825
  7. PREDONINE [Concomitant]
     Indication: MYELODYSPLASTIC SYNDROME
     Dosage: 5 MG, UNK
     Route: 048
     Dates: start: 20080919, end: 20090825
  8. CALONAL [Concomitant]
     Indication: BACK PAIN
     Dosage: 1 G, UNK
     Route: 048
     Dates: start: 20090410, end: 20090825
  9. HALCION [Concomitant]
     Indication: BACK PAIN
     Dosage: 0.125 MG, UNK
     Dates: start: 20090717, end: 20090825
  10. RED BLOOD CELLS, LEUCOCYTE DEPLETED [Concomitant]
     Dosage: 2 U EVERY 7 WEEKS
     Dates: start: 20080607, end: 20080905
  11. RED BLOOD CELLS, LEUCOCYTE DEPLETED [Concomitant]
     Dosage: 2 U EVERY 2 WEEKS
     Dates: start: 20080906, end: 20081017
  12. RED BLOOD CELLS, LEUCOCYTE DEPLETED [Concomitant]
     Dosage: 2 U EVERY 3 WEEKS
     Dates: start: 20081018, end: 20090508
  13. RED BLOOD CELLS, LEUCOCYTE DEPLETED [Concomitant]
     Dosage: 2 U, QW
     Dates: start: 20090509, end: 20090522
  14. RED BLOOD CELLS, LEUCOCYTE DEPLETED [Concomitant]
     Dosage: 4 U, QW
     Dates: start: 20090523, end: 20090605
  15. RED BLOOD CELLS, LEUCOCYTE DEPLETED [Concomitant]
     Dosage: 2 U EVERY 3 WEEKS
     Dates: start: 20090606, end: 20090626
  16. RED BLOOD CELLS, LEUCOCYTE DEPLETED [Concomitant]
     Dosage: 2 U, QW
     Dates: start: 20090704, end: 20090705
  17. RED BLOOD CELLS, LEUCOCYTE DEPLETED [Concomitant]
     Dosage: 2 U EVERY 4 WEEKS
     Dates: start: 20090706, end: 20090731

REACTIONS (7)
  - CEREBRAL HAEMORRHAGE [None]
  - HAEMOGLOBIN DECREASED [None]
  - INSOMNIA [None]
  - MALIGNANT NEOPLASM PROGRESSION [None]
  - PANCYTOPENIA [None]
  - PLATELET COUNT DECREASED [None]
  - RENAL IMPAIRMENT [None]
